FAERS Safety Report 13273333 (Version 3)
Quarter: 2017Q1

REPORT INFORMATION
  Report Type: Report from Study
  Country: US (occurrence: US)
  Receive Date: 20170227
  Receipt Date: 20170308
  Transmission Date: 20170428
  Serious: Yes (Other)
  Sender: FDA-Public Use
  Company Number: US-009507513-1702USA002846

PATIENT
  Sex: Female

DRUGS (1)
  1. PEMBROLIZUMAB. [Suspect]
     Active Substance: PEMBROLIZUMAB
     Indication: NON-SMALL CELL LUNG CANCER
     Dosage: 200 MG, Q3W
     Route: 042
     Dates: start: 20170106

REACTIONS (3)
  - Fatigue [Recovered/Resolved]
  - Insomnia [Recovering/Resolving]
  - Pneumonia [Recovered/Resolved]

NARRATIVE: CASE EVENT DATE: 2017
